FAERS Safety Report 16708104 (Version 4)
Quarter: 2019Q4

REPORT INFORMATION
  Report Type: Spontaneous
  Country: ID (occurrence: ID)
  Receive Date: 20190815
  Receipt Date: 20191003
  Transmission Date: 20200122
  Serious: Yes (Death, Hospitalization)
  Sender: FDA-Public Use
  Company Number: ID-NOVOPROD-678528

PATIENT
  Age: 77 Year
  Sex: Female
  Weight: 60 kg

DRUGS (2)
  1. TRESIBA [Suspect]
     Active Substance: INSULIN DEGLUDEC
     Indication: TYPE 2 DIABETES MELLITUS
     Dosage: 8 IU, QD (TAKEN IN THE EVENING)
     Route: 058
     Dates: start: 20190627
  2. NOVORAPID [Suspect]
     Active Substance: INSULIN ASPART
     Indication: TYPE 2 DIABETES MELLITUS
     Dosage: TID
     Route: 058
     Dates: start: 20190622

REACTIONS (3)
  - Dyspnoea [Fatal]
  - Depressed level of consciousness [Unknown]
  - Hyponatraemia [Unknown]

NARRATIVE: CASE EVENT DATE: 20190804
